FAERS Safety Report 20151115 (Version 1)
Quarter: 2021Q4

REPORT INFORMATION
  Report Type: Spontaneous
  Country: DE (occurrence: DE)
  Receive Date: 20211206
  Receipt Date: 20211206
  Transmission Date: 20220303
  Serious: Yes (Hospitalization)
  Sender: FDA-Public Use
  Company Number: DE-ADVANZ PHARMA-202111008102

PATIENT

DRUGS (1)
  1. HYDROCHLOROTHIAZIDE\METOPROLOL [Suspect]
     Active Substance: HYDROCHLOROTHIAZIDE\METOPROLOL
     Indication: Product used for unknown indication
     Dosage: UNK, BID (IN THE MORNING AND IN THE EVENING) (PROLONGED-RELEASE TABLET) (BELOC-ZOK COMP)
     Route: 048
     Dates: start: 1997

REACTIONS (6)
  - Abdominal distension [Recovered/Resolved]
  - Reaction to excipient [Recovered/Resolved]
  - Feeding disorder [Recovered/Resolved]
  - Balance disorder [Unknown]
  - Alcohol abuse [Unknown]
  - Hypotension [Unknown]

NARRATIVE: CASE EVENT DATE: 20020101
